FAERS Safety Report 22263059 (Version 5)
Quarter: 2023Q2

REPORT INFORMATION
  Report Type: Report from Study
  Country: EG (occurrence: EG)
  Receive Date: 20230428
  Receipt Date: 20230629
  Transmission Date: 20230721
  Serious: Yes (Hospitalization)
  Sender: FDA-Public Use
  Company Number: EG-JNJFOC-20230410972

PATIENT
  Age: 42 Year
  Sex: Female

DRUGS (11)
  1. ESKETAMINE [Suspect]
     Active Substance: ESKETAMINE
     Indication: Product used for unknown indication
     Dates: start: 20230226
  2. ESKETAMINE [Suspect]
     Active Substance: ESKETAMINE
     Dates: start: 20230301
  3. ESKETAMINE [Suspect]
     Active Substance: ESKETAMINE
     Dates: start: 20230328
  4. ESKETAMINE [Suspect]
     Active Substance: ESKETAMINE
     Dates: start: 20230401
  5. ESKETAMINE [Suspect]
     Active Substance: ESKETAMINE
     Dates: start: 20230418
  6. ESKETAMINE [Suspect]
     Active Substance: ESKETAMINE
     Dates: start: 20230425
  7. ESKETAMINE [Suspect]
     Active Substance: ESKETAMINE
     Dates: start: 20230524
  8. EFFEXOR [Concomitant]
     Active Substance: VENLAFAXINE HYDROCHLORIDE
     Indication: Product used for unknown indication
  9. PAROXEDEP CR [Concomitant]
     Indication: Product used for unknown indication
  10. AMITRIPTYLINE HYDROCHLORIDE [Concomitant]
     Active Substance: AMITRIPTYLINE HYDROCHLORIDE
     Indication: Product used for unknown indication
  11. TRAZODONE HYDROCHLORIDE [Concomitant]
     Active Substance: TRAZODONE HYDROCHLORIDE
     Indication: Product used for unknown indication

REACTIONS (5)
  - Depression [Unknown]
  - Influenza [Unknown]
  - Drug ineffective [Unknown]
  - Product dose omission issue [Unknown]
  - Off label use [Unknown]

NARRATIVE: CASE EVENT DATE: 20230101
